FAERS Safety Report 9974438 (Version 1)
Quarter: 2014Q1

REPORT INFORMATION
  Report Type: Report from Study
  Country: US (occurrence: US)
  Receive Date: 20140306
  Receipt Date: 20140306
  Transmission Date: 20141002
  Serious: No
  Sender: FDA-Public Use
  Company Number: US-ABBVIE-13P-163-1158909-00

PATIENT
  Age: 63 Year
  Sex: Female
  Weight: 102.15 kg

DRUGS (21)
  1. HUMIRA [Suspect]
     Indication: PSORIASIS
     Dates: start: 201302
  2. HUMIRA [Suspect]
     Indication: PSORIATIC ARTHROPATHY
  3. METHOTREXATE [Concomitant]
     Indication: PSORIASIS
     Dates: start: 20130831
  4. METHOTREXATE [Concomitant]
     Indication: PSORIATIC ARTHROPATHY
  5. BYSTOLIC [Concomitant]
     Indication: HYPERTENSION
  6. LOSARTAN [Concomitant]
     Indication: HYPERTENSION
  7. CYMBALTA [Concomitant]
     Indication: PAIN
  8. CYMBALTA [Concomitant]
     Indication: SERUM SEROTONIN INCREASED
  9. PRILOSEC [Concomitant]
     Indication: GASTROOESOPHAGEAL REFLUX DISEASE
  10. PRILOSEC [Concomitant]
     Indication: GASTRIC PH DECREASED
  11. ALLEGRA [Concomitant]
     Indication: HYPERSENSITIVITY
  12. MULTIVITAMIN [Concomitant]
     Indication: VITAMIN SUPPLEMENTATION
  13. VITAMIN B12 [Concomitant]
     Indication: NERVOUSNESS
  14. CALCIUM [Concomitant]
     Indication: BONE DISORDER
  15. VITAMIN D [Concomitant]
     Indication: PAIN
  16. FISH OIL [Concomitant]
     Indication: BLOOD CHOLESTEROL INCREASED
  17. GLIPIZIDE [Concomitant]
     Indication: DIABETES MELLITUS
  18. TUMS [Concomitant]
     Indication: MINERAL SUPPLEMENTATION
  19. ASPIRIN [Concomitant]
     Indication: ANTICOAGULANT THERAPY
  20. ESTROGEN [Concomitant]
     Indication: AFFECTIVE DISORDER
     Dates: start: 20130927
  21. FOLIC ACID [Concomitant]
     Indication: SUPPLEMENTATION THERAPY

REACTIONS (15)
  - Psoriasis [Unknown]
  - Hypertension [Unknown]
  - Feeling abnormal [Unknown]
  - Mood swings [Unknown]
  - Anger [Unknown]
  - Injection site pain [Not Recovered/Not Resolved]
  - Dizziness [Not Recovered/Not Resolved]
  - Nasal discomfort [Not Recovered/Not Resolved]
  - Nasal discomfort [Not Recovered/Not Resolved]
  - Erythema [Not Recovered/Not Resolved]
  - Acne [Recovered/Resolved]
  - Acne [Recovering/Resolving]
  - Acne [Recovered/Resolved]
  - Butterfly rash [Unknown]
  - Nasal discomfort [Not Recovered/Not Resolved]
